FAERS Safety Report 16895765 (Version 3)
Quarter: 2020Q2

REPORT INFORMATION
  Report Type: Report from Study
  Country: BR (occurrence: BR)
  Receive Date: 20191008
  Receipt Date: 20200626
  Transmission Date: 20200713
  Serious: Yes (Other)
  Sender: FDA-Public Use
  Company Number: BR-UCBSA-2019042203

PATIENT
  Age: 71 Year
  Sex: Female
  Weight: 45 kg

DRUGS (4)
  1. CERTOLIZUMAB PEGOL RA [Suspect]
     Active Substance: CERTOLIZUMAB PEGOL
     Indication: RHEUMATOID ARTHRITIS
     Dosage: UNK
     Route: 058
     Dates: start: 201905, end: 201906
  2. GALANTAMINA [GALANTAMINE] [Concomitant]
     Indication: DEMENTIA ALZHEIMER^S TYPE
     Dosage: 16 MILLIGRAM
     Route: 048
     Dates: start: 2018
  3. MEMANTINA [MEMANTINE] [Concomitant]
     Indication: DEMENTIA ALZHEIMER^S TYPE
     Dosage: 10 MILLIGRAM
     Route: 048
     Dates: start: 2018
  4. TOPIRAMATO [Concomitant]
     Active Substance: TOPIRAMATE
     Indication: DEMENTIA ALZHEIMER^S TYPE
     Dosage: 25 MILLIGRAM
     Route: 048
     Dates: start: 2018

REACTIONS (1)
  - Breast cancer [Recovering/Resolving]

NARRATIVE: CASE EVENT DATE: 201908
